FAERS Safety Report 16348516 (Version 6)
Quarter: 2019Q3

REPORT INFORMATION
  Report Type: Spontaneous
  Country: CN (occurrence: CN)
  Receive Date: 20190523
  Receipt Date: 20190729
  Transmission Date: 20191004
  Serious: Yes (Life-Threatening, Hospitalization, Other)
  Sender: FDA-Public Use
  Company Number: CN-BAYER-2019-067638

PATIENT
  Age: 65 Year
  Sex: Male

DRUGS (2)
  1. AVELOX [Suspect]
     Active Substance: MOXIFLOXACIN HYDROCHLORIDE
     Indication: CHEST X-RAY ABNORMAL
  2. AVELOX [Suspect]
     Active Substance: MOXIFLOXACIN HYDROCHLORIDE
     Indication: PNEUMONIA
     Dosage: 1 DF, QD
     Route: 048
     Dates: start: 20190329, end: 20190331

REACTIONS (24)
  - Adverse event [Recovering/Resolving]
  - Sciatica [Recovering/Resolving]
  - Gastrooesophageal reflux disease [Recovering/Resolving]
  - Depressed level of consciousness [Recovered/Resolved]
  - Pyrexia [Recovered/Resolved]
  - Pain [Recovering/Resolving]
  - Vomiting [Recovering/Resolving]
  - Dyspepsia [Recovering/Resolving]
  - Bacterial allergy [Recovering/Resolving]
  - Chest pain [Not Recovered/Not Resolved]
  - Fungal infection [Recovered/Resolved]
  - Rash [Recovering/Resolving]
  - Hiccups [None]
  - Drug hypersensitivity [Recovering/Resolving]
  - Decreased appetite [None]
  - Pain of skin [None]
  - Bacterial infection [None]
  - Chest discomfort [Not Recovered/Not Resolved]
  - Central pain syndrome [Recovering/Resolving]
  - Headache [Not Recovered/Not Resolved]
  - Gastrointestinal disorder [Not Recovered/Not Resolved]
  - Nausea [Recovering/Resolving]
  - Discomfort [Recovering/Resolving]
  - Abdominal discomfort [Not Recovered/Not Resolved]

NARRATIVE: CASE EVENT DATE: 2019
